FAERS Safety Report 24863565 (Version 3)
Quarter: 2025Q1

REPORT INFORMATION
  Report Type: Spontaneous
  Country: JP (occurrence: JP)
  Receive Date: 20250120
  Receipt Date: 20250324
  Transmission Date: 20250408
  Serious: Yes (Disabling, Other)
  Sender: TAKEDA
  Company Number: JP-OTSUKA-2025_000923

PATIENT
  Age: 52 Year
  Sex: Female

DRUGS (8)
  1. ICLUSIG [Suspect]
     Active Substance: PONATINIB HYDROCHLORIDE
     Indication: Philadelphia positive acute lymphocytic leukaemia
     Dosage: 15 MILLIGRAM, QD
     Dates: start: 20210506, end: 20231130
  2. SULFAMETHOXAZOLE\TRIMETHOPRIM [Concomitant]
     Active Substance: SULFAMETHOXAZOLE\TRIMETHOPRIM
     Indication: Product used for unknown indication
     Dosage: UNK UNK, QD
     Dates: start: 202010
  3. ACYCLOVIR [Concomitant]
     Active Substance: ACYCLOVIR
     Indication: Product used for unknown indication
     Dosage: 200 MILLIGRAM, QD
     Dates: start: 202010
  4. AMLODIPINE BESYLATE [Concomitant]
     Active Substance: AMLODIPINE BESYLATE
     Indication: Product used for unknown indication
     Dosage: 5 MILLIGRAM, QD
     Dates: start: 20220608
  5. ROSUVASTATIN CALCIUM [Concomitant]
     Active Substance: ROSUVASTATIN CALCIUM
     Indication: Product used for unknown indication
     Dosage: 2.5 MILLIGRAM, QD
     Dates: start: 20230712
  6. ALFAROL [Concomitant]
     Active Substance: ALFACALCIDOL
     Indication: Product used for unknown indication
     Dosage: 1 MICROGRAM, QD
     Dates: start: 202010, end: 20230717
  7. MENATETRENONE [Concomitant]
     Active Substance: MENATETRENONE
     Indication: Product used for unknown indication
     Dosage: 45 MILLIGRAM, QD
     Dates: start: 202010, end: 20230717
  8. VONOPRAZAN FUMARATE [Concomitant]
     Active Substance: VONOPRAZAN FUMARATE
     Indication: Product used for unknown indication
     Dosage: 20 MILLIGRAM, QD
     Dates: start: 202010, end: 20230717

REACTIONS (2)
  - Nephrotic syndrome [Recovering/Resolving]
  - Renal impairment [Not Recovered/Not Resolved]

NARRATIVE: CASE EVENT DATE: 20220119
